FAERS Safety Report 22090356 (Version 5)
Quarter: 2023Q4

REPORT INFORMATION
  Report Type: Spontaneous
  Country: CZ (occurrence: CZ)
  Receive Date: 20230313
  Receipt Date: 20231117
  Transmission Date: 20240110
  Serious: Yes (Death, Life-Threatening, Other)
  Sender: FDA-Public Use
  Company Number: CZ-BRISTOL-MYERS SQUIBB COMPANY-2023-027404

PATIENT
  Age: 51 Year
  Sex: Male

DRUGS (21)
  1. IMATINIB [Suspect]
     Active Substance: IMATINIB
     Indication: Chronic myeloid leukaemia
     Dosage: 400 MILLIGRAM
     Route: 065
     Dates: start: 2014
  2. METHOTREXATE [Suspect]
     Active Substance: METHOTREXATE
     Indication: Chronic myeloid leukaemia
     Dosage: 2ND, 31ST, 33RD DAYS OF CHEMOTHERAPY
     Route: 037
     Dates: start: 2014
  3. METHOTREXATE [Suspect]
     Active Substance: METHOTREXATE
     Indication: Nervous system disorder prophylaxis
  4. RITUXIMAB [Suspect]
     Active Substance: RITUXIMAB
     Indication: Chronic myeloid leukaemia
     Dosage: 700 MG, 1 CYCLICAL (DAY 1 OF CHEMOTHERAPY)
     Route: 065
     Dates: start: 2014
  5. RITUXIMAB [Suspect]
     Active Substance: RITUXIMAB
     Dosage: 200 MG (DAY 2 OF CHEMOTHERAPY)
     Route: 065
  6. RITUXIMAB [Suspect]
     Active Substance: RITUXIMAB
     Dosage: 400 MG(DAY 3 OF CHEMOTHERAPY)
     Route: 065
  7. RITUXIMAB [Suspect]
     Active Substance: RITUXIMAB
     Dosage: 100 MILLIGRAM (DAY 1 OF CHEMOTHERAPY)
     Route: 065
  8. VINCRISTINE [Suspect]
     Active Substance: VINCRISTINE
     Indication: Chronic myeloid leukaemia
     Dosage: 4MG, 1 CYCLICAL (2MG PER DAY; DAYS 7 AND 14)
     Route: 065
     Dates: start: 2014
  9. VINCRISTINE [Suspect]
     Active Substance: VINCRISTINE
     Dosage: 2 MG, QD DAYS 7 AND 14 OF CHEMOTHERAP
     Route: 065
  10. ASPARAGINASE [Suspect]
     Active Substance: ASPARAGINASE
     Indication: Chronic myeloid leukaemia
     Dosage: 18000 IU, 1 CYCLICAL (9000IE; DAYS 17 AND 25)
     Route: 065
     Dates: start: 2014
  11. INTERFERON ALFA-2A [Suspect]
     Active Substance: INTERFERON ALFA-2A
     Indication: Chronic myeloid leukaemia
     Dosage: UNK, 0.5 WEEK (3 MIU)
     Route: 065
     Dates: start: 201503
  12. CYTARABINE [Suspect]
     Active Substance: CYTARABINE
     Indication: Chronic myeloid leukaemia
     Dosage: 2ND, 31ST, 33RD DAYS OF CHEMOTHERAPY
     Route: 037
     Dates: start: 2014
  13. CYTARABINE [Suspect]
     Active Substance: CYTARABINE
     Indication: Nervous system disorder prophylaxis
  14. DAUNORUBICIN HYDROCHLORIDE [Suspect]
     Active Substance: DAUNORUBICIN HYDROCHLORIDE
     Indication: Chronic myeloid leukaemia
     Dosage: 320 MG, 1 CYCLICAL (80MG,QD(DAYS7-8 AND 14-15 OF)
     Route: 065
     Dates: start: 2014
  15. DAUNORUBICIN HYDROCHLORIDE [Suspect]
     Active Substance: DAUNORUBICIN HYDROCHLORIDE
     Dosage: 80 MG, QD DAYS 7-8 AND 14-15 OF CHEMOTHERAPY
     Route: 065
  16. DEXAMETHASONE [Suspect]
     Active Substance: DEXAMETHASONE
     Indication: Chronic myeloid leukaemia
     Dosage: 2ND, 31ST,33RD DAYS OF CHEMOTHERAPY
     Route: 037
     Dates: start: 2014
  17. DEXAMETHASONE [Suspect]
     Active Substance: DEXAMETHASONE
     Indication: Nervous system disorder prophylaxis
  18. CYCLOPHOSPHAMIDE [Suspect]
     Active Substance: CYCLOPHOSPHAMIDE
     Indication: Chronic myeloid leukaemia
     Dosage: 1080MG, 1 CYCLICAL (360 MG PER DAY; DAYS 4?6)
     Route: 065
     Dates: start: 2014
  19. CYCLOPHOSPHAMIDE [Suspect]
     Active Substance: CYCLOPHOSPHAMIDE
     Dosage: 360 MG, QD DAYS 4-6 OF CHEMOTHERAPY
     Route: 065
  20. DASATINIB [Suspect]
     Active Substance: DASATINIB
     Indication: Chronic myeloid leukaemia
     Dosage: 40 MILLIGRAM (40 MG PER DAY FIVE TIMES PER WEEK)
     Route: 065
  21. GRANULOCYTE COLONY-STIMULATING FACTOR NOS [Concomitant]
     Active Substance: GRANULOCYTE COLONY-STIMULATING FACTOR NOS
     Indication: Neutropenia
     Dosage: 48UG, 13 TIMES OVER EIGHT WEEKS
     Route: 065

REACTIONS (13)
  - Pneumonia influenzal [Fatal]
  - Neutropenia [Recovered/Resolved]
  - Mucosal inflammation [Unknown]
  - Nephrotic syndrome [Unknown]
  - Liver disorder [Unknown]
  - Renal failure [Unknown]
  - Cerebral toxoplasmosis [Recovering/Resolving]
  - Ileus [Unknown]
  - Pneumonia fungal [Unknown]
  - Pancreatitis acute [Unknown]
  - Weight decreased [Unknown]
  - Off label use [Unknown]
  - Intentional product use issue [Unknown]
